FAERS Safety Report 11236885 (Version 1)
Quarter: 2015Q3

REPORT INFORMATION
  Report Type: Spontaneous
  Country: US (occurrence: US)
  Receive Date: 20150703
  Receipt Date: 20150703
  Transmission Date: 20151125
  Serious: No
  Sender: FDA-Public Use
  Company Number: US-TAKEDA-2015TUS007045

PATIENT
  Sex: Female
  Weight: 81.63 kg

DRUGS (3)
  1. CONTRAVE [Suspect]
     Active Substance: BUPROPION HYDROCHLORIDE\NALTREXONE HYDROCHLORIDE
     Dosage: UNK
  2. CONTRAVE [Suspect]
     Active Substance: BUPROPION HYDROCHLORIDE\NALTREXONE HYDROCHLORIDE
     Indication: OVERWEIGHT
     Dosage: ONE TABLET, QD
     Route: 048
     Dates: start: 20150203, end: 20150204
  3. LEVOXYL [Concomitant]
     Active Substance: LEVOTHYROXINE SODIUM
     Indication: HYPOTHYROIDISM
     Dosage: 75 MCG, ONCE DAILY
     Route: 048
     Dates: start: 2011

REACTIONS (2)
  - Nausea [Recovered/Resolved]
  - Headache [Recovered/Resolved]
